FAERS Safety Report 9920827 (Version 1)
Quarter: 2014Q1

REPORT INFORMATION
  Report Type: Report from Study
  Country: US (occurrence: US)
  Receive Date: 20140224
  Receipt Date: 20140224
  Transmission Date: 20141002
  Serious: Yes (Hospitalization, Other)
  Sender: FDA-Public Use
  Company Number: US-ROCHE-1353468

PATIENT
  Sex: Female

DRUGS (3)
  1. LUCENTIS [Suspect]
     Indication: AGE-RELATED MACULAR DEGENERATION
     Dosage: OD
     Route: 050
  2. AVASTIN [Suspect]
     Indication: AGE-RELATED MACULAR DEGENERATION
     Route: 050
  3. VIGAMOX [Concomitant]
     Route: 047

REACTIONS (8)
  - Urinary tract infection [Unknown]
  - Macular oedema [Unknown]
  - Macular pigmentation [Unknown]
  - Eye haemorrhage [Unknown]
  - Dry eye [Unknown]
  - Macular fibrosis [Unknown]
  - Off label use [Unknown]
  - Retinal scar [Unknown]
